FAERS Safety Report 10229899 (Version 2)
Quarter: 2014Q2

REPORT INFORMATION
  Report Type: Spontaneous
  Country: US (occurrence: None)
  Receive Date: 20140609
  Receipt Date: 20140616
  Transmission Date: 20141212
  Serious: Yes (Hospitalization)
  Sender: FDA-Public Use
  Company Number: UNT-2014-001356

PATIENT
  Sex: Male

DRUGS (32)
  1. TENORMIN (ATENOLOL) [Concomitant]
  2. EFFEXOR (VENLAFAXINE HYDROCHLORIDE) [Concomitant]
  3. POTASSIUM CHLORIDE (POTASSIUM CHLORIDE) [Concomitant]
  4. ZYLOPRIM (ALLOPURINOL) [Concomitant]
  5. COLCHICINE (COLCHICINE) [Concomitant]
  6. PRANDIN /00882701/ (DEFLAZACORT) [Concomitant]
  7. PREDNISONE (PREDNISONE) [Concomitant]
  8. COQ10 /00517201/ (UBIDECARENONE) [Concomitant]
  9. ZINC (ZINC) [Concomitant]
  10. MULTIVITAMINS, PLAIN [Concomitant]
  11. XANAX (ALPRAZOLAM) [Concomitant]
  12. STADOL (BUTORPHANOL TARTRATE) [Concomitant]
  13. LASIX (FUROSEMIDE) [Concomitant]
  14. HYDROCODONE/ACETAMINOPHEN (HYDROCODONE BITARTRATE, PARACETAMOL) [Concomitant]
  15. ULTRAM (TRADMADOL HYDROCHLORIDE) [Concomitant]
  16. REMODULIN [Suspect]
     Indication: PULMONARY ARTERIAL HYPERTENSION
     Dosage: 0.019 UG/KG, CONTINUING, SUBCUTANEOUS
     Route: 058
     Dates: start: 20130605
  17. LETAIRIS (AMBRISENTAN) [Concomitant]
  18. RESTORIL /00393701/ [Concomitant]
  19. XIFAXAN (RIFAXIMIN) [Concomitant]
  20. TORSEMIDE (TORASEMIDE) [Concomitant]
  21. CELEBREX (CELECOXIB) [Concomitant]
  22. GABAPENTIN (GABAPENTIN) [Concomitant]
  23. COZAAR (LOSARTAN POTASSIUM) (50 MILLIGRAM, TABLETS) (LOSARTAN POTASSIUM) [Concomitant]
  24. PLAVIX (CLOPIDOGREL BISULFATE) [Concomitant]
  25. NEXIUM /01479302/ (ESOMEPRAZOLE MAGNESIUM) [Concomitant]
  26. VIAGRA (SILDENAFIL CITRATE) [Concomitant]
  27. ANDRODERM (TESTOSTERONE) [Concomitant]
  28. LANOXIN (DIGOXIN) [Concomitant]
  29. CRESTOR (ROSUVASTATIN CALCIUM) [Concomitant]
  30. TRAZODONE (TRAZODONE) [Concomitant]
  31. TRICOR (FENOFIBRATE) [Concomitant]
  32. FLONASE (FLUTICASONE PROPIONATE) [Concomitant]

REACTIONS (2)
  - Fluid overload [None]
  - Skin ulcer [None]
